FAERS Safety Report 6245497-X (Version None)
Quarter: 2009Q2

REPORT INFORMATION
  Report Type: 
  Country: None (occurrence: None)
  Receive Date: 20090625
  Receipt Date: 20090616
  Transmission Date: 20091009
  Serious: Yes (Other)
  Sender: FDA-Public Use
  Company Number: GB-ABBOTT-09P-167-0580044-00

PATIENT
  Sex: Male

DRUGS (2)
  1. EPILIM TABLETS [Suspect]
     Indication: BIPOLAR DISORDER
     Dosage: ONE GRAM DAILY
     Route: 048
  2. QUETIAPINE FUMARATE [Concomitant]
     Indication: DRUG USE FOR UNKNOWN INDICATION

REACTIONS (3)
  - HYPERVIGILANCE [None]
  - MANIA [None]
  - PSYCHOMOTOR HYPERACTIVITY [None]
